FAERS Safety Report 17545481 (Version 1)
Quarter: 2020Q1

REPORT INFORMATION
  Report Type: Spontaneous
  Country: IN (occurrence: IN)
  Receive Date: 20200316
  Receipt Date: 20200316
  Transmission Date: 20200409
  Serious: Yes (Other)
  Sender: FDA-Public Use
  Company Number: IN-PFIZER INC-2019194736

PATIENT
  Age: 48 Year
  Sex: Female
  Weight: 80 kg

DRUGS (4)
  1. PYRIGESIC [Concomitant]
     Dosage: 1 G, AS NEEDED (SOS (MAX 3 TABS/DAY))
  2. SHELCAL HD [Concomitant]
     Active Substance: CALCIUM CARBONATE\CHOLECALCIFEROL
     Dosage: UNK , 1X/DAY
  3. FEMPRO [Concomitant]
     Active Substance: LETROZOLE
     Dosage: 2.5 MG, 1X/DAY
  4. PALBACE [Suspect]
     Active Substance: PALBOCICLIB
     Indication: BREAST CANCER METASTATIC
     Dosage: 125 MG, CYCLIC (D1-D21 Q28 DAYS CYCLES)
     Route: 048
     Dates: start: 20180801

REACTIONS (17)
  - Cholelithiasis [Unknown]
  - Platelet count decreased [Unknown]
  - Myalgia [Unknown]
  - Haematocrit decreased [Unknown]
  - Aortic thrombosis [Unknown]
  - White blood cell count decreased [Unknown]
  - Pyrexia [Unknown]
  - Weight decreased [Unknown]
  - Pain [Unknown]
  - Dyspepsia [Recovered/Resolved]
  - Osteolysis [Unknown]
  - Red blood cell count decreased [Unknown]
  - Neutrophil count decreased [Unknown]
  - Hypotension [Unknown]
  - Neoplasm progression [Unknown]
  - Upper respiratory tract infection [Unknown]
  - Flushing [Unknown]

NARRATIVE: CASE EVENT DATE: 20190418
